FAERS Safety Report 4842941-7 (Version None)
Quarter: 2005Q4

REPORT INFORMATION
  Report Type: 
  Country: None (occurrence: None)
  Receive Date: 20051201
  Receipt Date: 20051129
  Transmission Date: 20060501
  Serious: Yes (Hospitalization)
  Sender: FDA-Public Use
  Company Number: US-GLAXOSMITHKLINE-A0583791A

PATIENT
  Age: 51 Year
  Sex: Female
  Weight: 43.6 kg

DRUGS (1)
  1. GOODY'S [Suspect]
     Indication: DRUG USE FOR UNKNOWN INDICATION
     Route: 048

REACTIONS (4)
  - DEPENDENCE [None]
  - GASTROINTESTINAL HAEMORRHAGE [None]
  - OVERDOSE [None]
  - WEIGHT DECREASED [None]
